FAERS Safety Report 17962347 (Version 1)
Quarter: 2020Q2

REPORT INFORMATION
  Report Type: Spontaneous
  Country: CA (occurrence: CA)
  Receive Date: 20200630
  Receipt Date: 20200630
  Transmission Date: 20200714
  Serious: Yes (Death, Other)
  Sender: FDA-Public Use
  Company Number: CA-BAXTER-2020BAX013135

PATIENT

DRUGS (17)
  1. METHYLPREDNISOLONE SODIUM SUCCINATE. [Suspect]
     Active Substance: METHYLPREDNISOLONE SODIUM SUCCINATE
     Indication: B-CELL LYMPHOMA RECURRENT
     Route: 042
  2. VP-16 [Suspect]
     Active Substance: ETOPOSIDE
     Indication: B-CELL LYMPHOMA RECURRENT
     Route: 065
  3. ARA-C [Suspect]
     Active Substance: CYTARABINE
     Indication: B-CELL LYMPHOMA RECURRENT
     Route: 042
  4. ETOPOSIDE. [Suspect]
     Active Substance: ETOPOSIDE
     Indication: B-CELL LYMPHOMA RECURRENT
     Dosage: DOSAGE FORM: NOT SPECIFIED
     Route: 065
  5. FILGRASTIM [Suspect]
     Active Substance: FILGRASTIM
     Indication: B-CELL LYMPHOMA RECURRENT
     Dosage: 10 UG/KG
     Route: 065
  6. INTERFERON ALFA-2A [Suspect]
     Active Substance: INTERFERON ALFA-2A
     Indication: B-CELL LYMPHOMA RECURRENT
     Route: 058
  7. PREDNISONE. [Suspect]
     Active Substance: PREDNISONE
     Indication: B-CELL LYMPHOMA RECURRENT
     Route: 048
  8. BICNU [Suspect]
     Active Substance: CARMUSTINE
     Indication: B-CELL LYMPHOMA RECURRENT
     Route: 065
  9. CYTARABINE. [Suspect]
     Active Substance: CYTARABINE
     Indication: B-CELL LYMPHOMA RECURRENT
     Dosage: DOSAGE FORM: POWDER FOR SOLUTION INTRATHECAL
     Route: 042
  10. DOXORUBICIN [Suspect]
     Active Substance: DOXORUBICIN
     Indication: B-CELL LYMPHOMA RECURRENT
     Route: 042
  11. VINCRISTINE SULFATE. [Suspect]
     Active Substance: VINCRISTINE SULFATE
     Indication: B-CELL LYMPHOMA RECURRENT
     Route: 042
  12. PROCYTOX (CYCLOPHOSPHAMIDE) 2000MG/VIAL [Suspect]
     Active Substance: CYCLOPHOSPHAMIDE
     Indication: B-CELL LYMPHOMA RECURRENT
     Route: 065
  13. CARMUSTINE. [Suspect]
     Active Substance: CARMUSTINE
     Indication: B-CELL LYMPHOMA RECURRENT
     Route: 065
  14. CISPLATIN. [Suspect]
     Active Substance: CISPLATIN
     Indication: B-CELL LYMPHOMA RECURRENT
     Route: 042
  15. DEXAMETHASONE. [Suspect]
     Active Substance: DEXAMETHASONE
     Indication: B-CELL LYMPHOMA RECURRENT
     Route: 048
  16. FLUDARABINE PHOSPHATE. [Suspect]
     Active Substance: FLUDARABINE PHOSPHATE
     Indication: B-CELL LYMPHOMA RECURRENT
     Route: 065
  17. RITUXIMAB. [Suspect]
     Active Substance: RITUXIMAB
     Indication: B-CELL LYMPHOMA RECURRENT
     Route: 042

REACTIONS (22)
  - Bronchitis [Fatal]
  - Cytopenia [Fatal]
  - Second primary malignancy [Fatal]
  - Thyroid cancer [Fatal]
  - Colorectal adenocarcinoma [Fatal]
  - Myelodysplastic syndrome [Fatal]
  - Interstitial lung disease [Fatal]
  - Fungal infection [Fatal]
  - Haemolytic uraemic syndrome [Fatal]
  - Herpes zoster [Fatal]
  - Non-small cell lung cancer [Fatal]
  - Respiratory tract infection [Fatal]
  - Squamous cell carcinoma [Fatal]
  - Atrial fibrillation [Fatal]
  - Fatigue [Fatal]
  - Infection [Fatal]
  - Respiratory disorder [Fatal]
  - Depression [Fatal]
  - Hypogammaglobulinaemia [Fatal]
  - Basal cell carcinoma [Fatal]
  - Pulmonary fibrosis [Fatal]
  - Thrombocytopenic purpura [Fatal]
